FAERS Safety Report 6674662-2 (Version None)
Quarter: 2010Q2

REPORT INFORMATION
  Report Type: 
  Country: None (occurrence: None)
  Receive Date: 20100409
  Receipt Date: 20100405
  Transmission Date: 20101027
  Serious: Yes (Death)
  Sender: FDA-Public Use
  Company Number: US-GILEAD-2010-0027291

PATIENT
  Sex: Female
  Weight: 60.836 kg

DRUGS (16)
  1. LETAIRIS [Suspect]
     Indication: PULMONARY ARTERIAL HYPERTENSION
     Route: 048
     Dates: start: 20070916, end: 20100216
  2. COUMADIN [Concomitant]
  3. OXYGEN [Concomitant]
  4. DEMADEX [Concomitant]
  5. MUCINEX [Concomitant]
  6. ALBUTEROL [Concomitant]
  7. ALLEGRA [Concomitant]
  8. SINGULAIR [Concomitant]
  9. FLONASE [Concomitant]
  10. REGLAN [Concomitant]
  11. DICYCLOMINE [Concomitant]
  12. PRILOSEC [Concomitant]
  13. K-DUR [Concomitant]
  14. LEVOTHYROXINE SODIUM [Concomitant]
  15. LUMIGAN EYE DROP [Concomitant]
  16. MULTI-VITAMIN [Concomitant]

REACTIONS (1)
  - DEATH [None]
